FAERS Safety Report 14128234 (Version 1)
Quarter: 2017Q4

REPORT INFORMATION
  Report Type: Spontaneous
  Country: US (occurrence: None)
  Receive Date: 20171025
  Receipt Date: 20171025
  Transmission Date: 20180321
  Serious: Yes (Other)
  Sender: FDA-Public Use
  Company Number: None

PATIENT
  Age: 61 Year
  Sex: Female
  Weight: 61.24 kg

DRUGS (1)
  1. PARODONTAX [Suspect]
     Active Substance: STANNOUS FLUORIDE

REACTIONS (3)
  - Oral disorder [None]
  - Oral discomfort [None]
  - Swollen tongue [None]

NARRATIVE: CASE EVENT DATE: 20171009
